FAERS Safety Report 15417585 (Version 2)
Quarter: 2018Q4

REPORT INFORMATION
  Report Type: Spontaneous
  Country: GB (occurrence: GB)
  Receive Date: 20180924
  Receipt Date: 20181115
  Transmission Date: 20190204
  Serious: Yes (Hospitalization, Disabling, Other)
  Sender: FDA-Public Use
  Company Number: GB-009507513-1809GBR008387

PATIENT
  Age: 27 Year
  Sex: Female
  Weight: 40 kg

DRUGS (15)
  1. MIRTAZAPINE. [Suspect]
     Active Substance: MIRTAZAPINE
     Dosage: 30MG FOR ONE NIGHT
     Route: 048
  2. OMEPRAZOLE. [Concomitant]
     Active Substance: OMEPRAZOLE
     Dosage: UNK
  3. DIAZEPAM. [Concomitant]
     Active Substance: DIAZEPAM
     Dosage: UNK
  4. DICLOFENAC [Concomitant]
     Active Substance: DICLOFENAC
     Dosage: UNK
  5. ZOPICLONE [Concomitant]
     Active Substance: ZOPICLONE
     Dosage: UNK
  6. METOCLOPRAMIDE. [Concomitant]
     Active Substance: METOCLOPRAMIDE
     Dosage: UNK
  7. PROMETHAZINE HYDROCHLORIDE. [Suspect]
     Active Substance: PROMETHAZINE HYDROCHLORIDE
     Indication: FIBROMYALGIA
     Dosage: 25 MG, UNK
     Route: 048
     Dates: start: 20180806, end: 20180807
  8. ALBUTEROL SULFATE. [Concomitant]
     Active Substance: ALBUTEROL SULFATE
     Dosage: UNK
  9. MIRTAZAPINE. [Suspect]
     Active Substance: MIRTAZAPINE
     Indication: FIBROMYALGIA
     Dosage: 15MG AND THEN 30MG FOR ONE NIGHT
     Route: 048
     Dates: start: 20180822
  10. ZOLPIDEM [Concomitant]
     Active Substance: ZOLPIDEM\ZOLPIDEM TARTRATE
     Dosage: UNK
  11. ACETAMINOPHEN AND CODEINE [Concomitant]
     Active Substance: ACETAMINOPHEN\CODEINE PHOSPHATE
     Dosage: UNK
  12. AMITRIPTYLINE HYDROCHLORIDE. [Suspect]
     Active Substance: AMITRIPTYLINE HYDROCHLORIDE
     Indication: FIBROMYALGIA
     Dosage: 10MG INCREASED TO 40MG OVER THAT TIME
     Route: 048
     Dates: start: 20180628
  13. AMITRIPTYLINE HYDROCHLORIDE. [Suspect]
     Active Substance: AMITRIPTYLINE HYDROCHLORIDE
     Dosage: 40MG, UNK
     Route: 048
  14. PROCHLORPERAZINE. [Concomitant]
     Active Substance: PROCHLORPERAZINE
     Dosage: UNK
  15. CYCLIZINE [Concomitant]
     Active Substance: CYCLIZINE
     Dosage: UNK

REACTIONS (8)
  - Insomnia [Unknown]
  - Restless legs syndrome [Recovering/Resolving]
  - Hypoaesthesia [Recovered/Resolved]
  - Paralysis [Recovered/Resolved]
  - Palpitations [Not Recovered/Not Resolved]
  - Dyspnoea [Recovering/Resolving]
  - Dysphagia [Recovered/Resolved]
  - Pruritus generalised [Recovered/Resolved]
